FAERS Safety Report 12624543 (Version 1)
Quarter: 2016Q3

REPORT INFORMATION
  Report Type: Spontaneous
  Country: US (occurrence: None)
  Receive Date: 20160804
  Receipt Date: 20160804
  Transmission Date: 20161109
  Serious: Yes (Other)
  Sender: FDA-Public Use
  Company Number: None

PATIENT
  Age: 10 Year
  Sex: Female
  Weight: 45.36 kg

DRUGS (2)
  1. PULMICORT FLEXHALER [Suspect]
     Active Substance: BUDESONIDE
     Indication: ASTHMA
     Dosage: 2 PUFFS 2X DAY TAKEN BY MOUTH
     Route: 048
  2. ALBUTEROL RESCUE INHALER [Concomitant]

REACTIONS (3)
  - Device issue [None]
  - Asthma [None]
  - Wrong technique in product usage process [None]

NARRATIVE: CASE EVENT DATE: 20160801
